FAERS Safety Report 8823253 (Version 2)
Quarter: 2013Q1

REPORT INFORMATION
  Report Type: Spontaneous
  Country: US (occurrence: US)
  Receive Date: 20121003
  Receipt Date: 20130306
  Transmission Date: 20140127
  Serious: No
  Sender: FDA-Public Use
  Company Number: US-GLAXOSMITHKLINE-A0995991A

PATIENT
  Age: 25 Year
  Sex: Female
  Weight: 39.6 kg

DRUGS (8)
  1. VOTRIENT [Suspect]
     Indication: SARCOMA METASTATIC
     Dosage: 600MG PER DAY
     Route: 048
     Dates: start: 20120911
  2. OXYCODONE [Concomitant]
     Indication: PAIN
  3. OXYCONTIN [Concomitant]
     Indication: PAIN
  4. DOCUSATE [Concomitant]
     Indication: CONSTIPATION
  5. SENNA [Concomitant]
     Indication: CONSTIPATION
  6. HYDROCORTISONE [Concomitant]
     Indication: STEROID THERAPY
  7. LACOSAMIDE [Concomitant]
     Indication: CONVULSION
  8. NYSTATIN [Concomitant]
     Indication: CANDIDA INFECTION

REACTIONS (6)
  - Abdominal pain [Recovering/Resolving]
  - Deafness [Unknown]
  - Decreased appetite [Unknown]
  - Nausea [Unknown]
  - Vomiting [Unknown]
  - Fatigue [Unknown]
